FAERS Safety Report 15081479 (Version 1)
Quarter: 2018Q2

REPORT INFORMATION
  Report Type: Spontaneous
  Country: DE (occurrence: DE)
  Receive Date: 20180628
  Receipt Date: 20180628
  Transmission Date: 20180711
  Serious: Yes (Other)
  Sender: FDA-Public Use
  Company Number: PHHY2018DE028320

PATIENT
  Age: 58 Year
  Sex: Female
  Weight: 40 kg

DRUGS (6)
  1. 5-FLUOROURACIL [Suspect]
     Active Substance: FLUOROURACIL
     Indication: HEAD AND NECK CANCER
     Dosage: 3000 MG/M2, Q3W
     Route: 065
     Dates: start: 20170621
  2. CARBOPLATIN. [Suspect]
     Active Substance: CARBOPLATIN
     Indication: HEAD AND NECK CANCER
     Dosage: 1 MG, QW (5 AUC)
     Route: 065
     Dates: start: 20170621
  3. ERBITUX [Suspect]
     Active Substance: CETUXIMAB
     Indication: HEAD AND NECK CANCER
     Dosage: 250 MG/M2, QW
     Route: 042
     Dates: start: 20170705
  4. 5-FLUOROURACIL [Suspect]
     Active Substance: FLUOROURACIL
     Dosage: 200 MG/M2, Q3W
     Route: 065
     Dates: start: 20170720
  5. ERBITUX [Suspect]
     Active Substance: CETUXIMAB
     Dosage: 400 MG/M2, UNK
     Route: 042
  6. PARACETAMOL [Concomitant]
     Active Substance: ACETAMINOPHEN
     Indication: PREMEDICATION
     Dosage: UNK
     Route: 065

REACTIONS (1)
  - Weight decreased [Unknown]

NARRATIVE: CASE EVENT DATE: 20170821
